FAERS Safety Report 13916763 (Version 2)
Quarter: 2017Q4

REPORT INFORMATION
  Report Type: Spontaneous
  Country: US (occurrence: US)
  Receive Date: 20170829
  Receipt Date: 20171231
  Transmission Date: 20180320
  Serious: Yes (Other)
  Sender: FDA-Public Use
  Company Number: US-ASTRAZENECA-2017SE88309

PATIENT
  Age: 64 Year
  Sex: Female
  Weight: 49.3 kg

DRUGS (13)
  1. NEXIUM 24HR [Suspect]
     Active Substance: ESOMEPRAZOLE MAGNESIUM
     Indication: GASTROOESOPHAGEAL REFLUX DISEASE
     Route: 048
  2. COQ10 [Concomitant]
     Active Substance: UBIDECARENONE
     Indication: MUSCULAR WEAKNESS
  3. VENLAFAXINE [Concomitant]
     Active Substance: VENLAFAXINE HYDROCHLORIDE
     Indication: DEPRESSION
  4. IBUPROFEN. [Concomitant]
     Active Substance: IBUPROFEN
     Indication: PAIN
     Dosage: 600.0MG AS REQUIRED
  5. ALLEGRA [Concomitant]
     Active Substance: FEXOFENADINE HYDROCHLORIDE
     Indication: HYPERSENSITIVITY
     Dosage: UNK, AS NEEDED
  6. FLUTICASONE. [Concomitant]
     Active Substance: FLUTICASONE
     Indication: HYPERSENSITIVITY
  7. LUTEIN [Concomitant]
     Active Substance: LUTEIN
     Indication: MACULAR DEGENERATION
  8. NEXIUM 24HR [Suspect]
     Active Substance: ESOMEPRAZOLE MAGNESIUM
     Indication: GASTROOESOPHAGEAL REFLUX DISEASE
     Route: 048
  9. TOUJEO [Concomitant]
     Active Substance: INSULIN GLARGINE
     Indication: DIABETES MELLITUS
     Dosage: 54 UNITS EVERYDAY AT BEDTIME
  10. ASPIRIN. [Concomitant]
     Active Substance: ASPIRIN
     Indication: CARDIAC DISORDER
     Dosage: 81.0MG UNKNOWN
  11. SIMVASTATIN. [Concomitant]
     Active Substance: SIMVASTATIN
     Indication: BLOOD CHOLESTEROL INCREASED
  12. METFORMIN [Concomitant]
     Active Substance: METFORMIN HYDROCHLORIDE
     Indication: DIABETES MELLITUS
  13. FLAXSEED [Concomitant]
     Active Substance: FLAX SEED
     Indication: DRY EYE
     Dosage: 1200.0MG UNKNOWN

REACTIONS (6)
  - Food intolerance [Unknown]
  - Dyspepsia [Unknown]
  - Blood glucose increased [Unknown]
  - Drug withdrawal syndrome [Unknown]
  - Incorrect drug administration duration [Unknown]
  - Intentional product misuse [Unknown]

NARRATIVE: CASE EVENT DATE: 20170716
